FAERS Safety Report 21633138 (Version 1)
Quarter: 2022Q4

REPORT INFORMATION
  Report Type: Spontaneous
  Country: US (occurrence: None)
  Receive Date: 20221122
  Receipt Date: 20221122
  Transmission Date: 20230113
  Serious: Yes (Hospitalization)
  Sender: FDA-Public Use
  Company Number: None

PATIENT
  Sex: Female

DRUGS (18)
  1. ENBREL [Suspect]
     Active Substance: ETANERCEPT
     Indication: Arthritis
     Dosage: FREQUENCY : WEEKLY;?
     Route: 058
     Dates: start: 20220816
  2. ALBUTEROL AER HFA [Concomitant]
  3. ALBUTEROL [Concomitant]
     Active Substance: ALBUTEROL
  4. BUPROPN HCL TAB XL [Concomitant]
  5. BUSPIRONE TAB [Concomitant]
  6. CIMZIA [Concomitant]
     Active Substance: CERTOLIZUMAB PEGOL
  7. CIMZIA START KIT [Concomitant]
  8. CITALOPRAM TAB [Concomitant]
  9. CYPROHEPTAD TAB [Concomitant]
  10. GABAPENTIN TAB [Concomitant]
  11. HYDROCORT OIN [Concomitant]
  12. MONTELUKAST SODIUM [Concomitant]
     Active Substance: MONTELUKAST SODIUM
  13. PENTASA CAP CR [Concomitant]
  14. PREDNISONE [Concomitant]
     Active Substance: PREDNISONE
  15. PROMETHAZINE [Concomitant]
     Active Substance: PROMETHAZINE HYDROCHLORIDE
  16. ROSUVASTATIN [Concomitant]
     Active Substance: ROSUVASTATIN
  17. VALACYCLOVIR TAB [Concomitant]
  18. WARFARIN TAB [Concomitant]

REACTIONS (1)
  - Product dose omission in error [None]
